FAERS Safety Report 17342270 (Version 1)
Quarter: 2020Q1

REPORT INFORMATION
  Report Type: Spontaneous
  Country: US (occurrence: US)
  Receive Date: 20200129
  Receipt Date: 20200129
  Transmission Date: 20200409
  Serious: No
  Sender: FDA-Public Use
  Company Number: US-ALLERGAN-1925092US

PATIENT
  Age: 65 Year
  Sex: Female

DRUGS (7)
  1. TAZORACREAM [Concomitant]
     Indication: SKIN EXFOLIATION
     Dosage: UNK
     Route: 061
  2. BOTOX COSMETIC [Suspect]
     Active Substance: ONABOTULINUMTOXINA
     Indication: SKIN WRINKLING
     Dosage: UNK, SINGLE
  3. LATISSE [Concomitant]
     Active Substance: BIMATOPROST
     Dosage: UNK
     Dates: start: 2009
  4. DERMAL FILLER [Concomitant]
     Indication: SKIN WRINKLING
     Dosage: INJECTION, STARTED YEARS AGO
  5. IMMUNOSUPPRESIVE DRUGS [Concomitant]
     Indication: ORGAN TRANSPLANT
     Dosage: VERY LOW DOSE
  6. BOTOX COSMETIC [Suspect]
     Active Substance: ONABOTULINUMTOXINA
     Indication: SKIN WRINKLING
     Dosage: UNK, SINGLE
  7. BOTOX COSMETIC [Suspect]
     Active Substance: ONABOTULINUMTOXINA
     Indication: SKIN WRINKLING
     Dosage: UNK, SINGLE

REACTIONS (3)
  - Therapeutic response decreased [Unknown]
  - Speech disorder [Recovering/Resolving]
  - Facial paresis [Recovering/Resolving]
